FAERS Safety Report 9641173 (Version 1)
Quarter: 2013Q4

REPORT INFORMATION
  Report Type: Spontaneous
  Country: US (occurrence: US)
  Receive Date: 20131023
  Receipt Date: 20131023
  Transmission Date: 20140711
  Serious: Yes (Other)
  Sender: FDA-Public Use
  Company Number: US-PFIZER INC-2013299864

PATIENT
  Age: 46 Year
  Sex: Female
  Weight: 84 kg

DRUGS (3)
  1. CELEBREX [Suspect]
     Indication: ARTHRITIS
     Dosage: 200 MG, 2X/DAY
     Route: 048
     Dates: start: 2012
  2. MORPHINE [Concomitant]
     Indication: PAIN
     Dosage: 30 MG, UNK
  3. DILAUDID [Concomitant]
     Dosage: UNK

REACTIONS (1)
  - Neck surgery [Unknown]
